FAERS Safety Report 11033973 (Version 1)
Quarter: 2015Q2

REPORT INFORMATION
  Report Type: Spontaneous
  Country: US (occurrence: US)
  Receive Date: 20150415
  Receipt Date: 20150415
  Transmission Date: 20150821
  Serious: Yes (Hospitalization, Other)
  Sender: FDA-Public Use
  Company Number: US-ELI_LILLY_AND_COMPANY-US201504002559

PATIENT
  Age: 55 Year
  Sex: Female
  Weight: 131.52 kg

DRUGS (1)
  1. HUMALOG [Suspect]
     Active Substance: INSULIN LISPRO
     Indication: PRODUCT USED FOR UNKNOWN INDICATION
     Route: 058

REACTIONS (5)
  - Hyperglycaemic unconsciousness [Recovered/Resolved]
  - Malaise [Unknown]
  - Blood glucose increased [Recovered/Resolved]
  - Diabetic ketoacidosis [Unknown]
  - Vomiting [Unknown]

NARRATIVE: CASE EVENT DATE: 20150328
